FAERS Safety Report 9603415 (Version 1)
Quarter: 2013Q4

REPORT INFORMATION
  Report Type: Spontaneous
  Country: US (occurrence: US)
  Receive Date: 20131007
  Receipt Date: 20131007
  Transmission Date: 20140711
  Serious: No
  Sender: FDA-Public Use
  Company Number: US-TEVA-380417USA

PATIENT
  Sex: 0

DRUGS (2)
  1. DIAMOX [Suspect]
     Dates: start: 201211
  2. CLOZAPINE [Interacting]

REACTIONS (2)
  - Neutrophil count decreased [Unknown]
  - Drug interaction [Unknown]
